FAERS Safety Report 5867287-X (Version None)
Quarter: 2008Q3

REPORT INFORMATION
  Report Type: 
  Country: None (occurrence: None)
  Receive Date: 20080829
  Receipt Date: 20080829
  Transmission Date: 20090109
  Serious: No
  Sender: FDA-Public Use
  Company Number: None

PATIENT
  Sex: Male
  Weight: 72.26 kg

DRUGS (4)
  1. CYANOCOBALAMIN [Suspect]
     Dosage: 1000 MCG
  2. DEXAMETHASONE TAB [Suspect]
     Dosage: 24 MG
  3. FOLIC ACID [Suspect]
     Dosage: 5600 MCG
  4. PEMETREXED [Suspect]
     Dosage: 930 MG

REACTIONS (8)
  - ANAEMIA [None]
  - DISEASE PROGRESSION [None]
  - HYPOXIA [None]
  - LUNG INFILTRATION [None]
  - NEPHROLITHIASIS [None]
  - PNEUMONIA [None]
  - RESPIRATORY ARREST [None]
  - UNRESPONSIVE TO STIMULI [None]
